FAERS Safety Report 22221314 (Version 2)
Quarter: 2023Q2

REPORT INFORMATION
  Report Type: Report from Study
  Country: US (occurrence: US)
  Receive Date: 20230418
  Receipt Date: 20230623
  Transmission Date: 20230722
  Serious: Yes (Other)
  Sender: FDA-Public Use
  Company Number: US-002147023-NVSC2023US085826

PATIENT
  Sex: Female
  Weight: 82.086 kg

DRUGS (9)
  1. METHOTREXATE [Suspect]
     Active Substance: METHOTREXATE
     Indication: Psoriatic arthropathy
     Dosage: UNK
     Route: 065
  2. METFORMIN [Suspect]
     Active Substance: METFORMIN HYDROCHLORIDE
     Indication: Psoriatic arthropathy
     Dosage: 1000 MG, BID (WITH MEALS)
     Route: 048
  3. COSENTYX [Suspect]
     Active Substance: SECUKINUMAB
     Indication: Psoriatic arthropathy
     Dosage: UNK
     Route: 065
  4. ADALIMUMAB [Suspect]
     Active Substance: ADALIMUMAB
     Indication: Psoriatic arthropathy
     Dosage: UNK
     Route: 065
  5. BISOPROLOL [Suspect]
     Active Substance: BISOPROLOL
     Indication: Psoriatic arthropathy
     Dosage: 5 MG, QD
     Route: 048
  6. DULOXETINE [Suspect]
     Active Substance: DULOXETINE
     Indication: Psoriatic arthropathy
     Dosage: 30 MG, QD (EVERY EVENING)
     Route: 048
  7. MELOXICAM [Suspect]
     Active Substance: MELOXICAM
     Indication: Psoriatic arthropathy
     Dosage: 15 MG, QD (TAKE X 90 DAYS)
     Route: 048
  8. NEBIVOLOL [Suspect]
     Active Substance: NEBIVOLOL
     Indication: Psoriatic arthropathy
     Dosage: 5 MG, QD
     Route: 048
  9. POTASSIUM CITRATE [Suspect]
     Active Substance: POTASSIUM CITRATE
     Indication: Psoriatic arthropathy
     Dosage: (10 MEQ ER), BID
     Route: 048

REACTIONS (13)
  - Type 2 diabetes mellitus [Unknown]
  - Psoriasis [Unknown]
  - Sinusitis [Unknown]
  - Arthritis [Unknown]
  - Nail dystrophy [Unknown]
  - Hyperkeratosis [Unknown]
  - Dactylitis [Unknown]
  - Bone formation increased [Unknown]
  - Infection [Unknown]
  - Onycholysis [Unknown]
  - Arthralgia [Unknown]
  - Off label use [Unknown]
  - Drug ineffective [Unknown]
